FAERS Safety Report 7846439-3 (Version None)
Quarter: 2011Q4

REPORT INFORMATION
  Report Type: 
  Country: None (occurrence: None)
  Receive Date: 20111025
  Receipt Date: 20111025
  Transmission Date: 20120403
  Serious: No
  Sender: FDA-Public Use
  Company Number: None

PATIENT
  Sex: Female
  Weight: 56.4 kg

DRUGS (2)
  1. PREDNISONE [Suspect]
     Indication: ENTEROCOLITIS
     Dosage: UNK
  2. DEXAMETHASONE [Concomitant]
     Indication: FAMILIAL HAEMOPHAGOCYTIC LYMPHOHISTIOCYTOSIS
     Dosage: 5 MG/M2

REACTIONS (4)
  - OSTEONECROSIS [None]
  - ARTHRALGIA [None]
  - GAIT DISTURBANCE [None]
  - PAIN [None]
